FAERS Safety Report 17289158 (Version 1)
Quarter: 2020Q1

REPORT INFORMATION
  Report Type: Spontaneous
  Country: CA (occurrence: CA)
  Receive Date: 20200120
  Receipt Date: 20200120
  Transmission Date: 20200409
  Serious: Yes (Other)
  Sender: FDA-Public Use
  Company Number: CA-PFIZER INC-2020024188

PATIENT
  Age: 21 Year
  Sex: Female
  Weight: 60 kg

DRUGS (3)
  1. DEPO-PROVERA [Suspect]
     Active Substance: MEDROXYPROGESTERONE ACETATE
     Indication: CONTRACEPTION
     Dosage: 150 MG/ML, UNK
     Route: 030
  2. MIFEGYMISO [MISOPROSTOL] [Suspect]
     Active Substance: MISOPROSTOL
  3. MIFEGYMISO [MIFEPRISTONE] [Interacting]
     Active Substance: MIFEPRISTONE

REACTIONS (3)
  - Maternal exposure during pregnancy [Recovering/Resolving]
  - Drug interaction [Recovering/Resolving]
  - Pregnancy with injectable contraceptive [Recovering/Resolving]
